FAERS Safety Report 21965446 (Version 1)
Quarter: 2023Q1

REPORT INFORMATION
  Report Type: Spontaneous
  Country: FR (occurrence: FR)
  Receive Date: 20230208
  Receipt Date: 20230208
  Transmission Date: 20230418
  Serious: Yes (Hospitalization, Other)
  Sender: FDA-Public Use
  Company Number: None

PATIENT
  Age: 83 Year
  Sex: Female
  Weight: 47 kg

DRUGS (12)
  1. OFEV [Suspect]
     Active Substance: NINTEDANIB
     Indication: Interstitial lung disease
     Route: 048
     Dates: start: 202204
  2. PREDNISONE [Concomitant]
     Active Substance: PREDNISONE
     Indication: Interstitial lung disease
     Dosage: NON RENSEIGN?E
     Route: 048
     Dates: start: 202109, end: 202204
  3. PREDNISONE [Concomitant]
     Active Substance: PREDNISONE
     Route: 048
     Dates: start: 202204, end: 20220905
  4. PREDNISONE [Concomitant]
     Active Substance: PREDNISONE
     Route: 048
     Dates: start: 20220905, end: 20221120
  5. PREDNISONE [Concomitant]
     Active Substance: PREDNISONE
     Route: 048
     Dates: start: 20221120
  6. LOPERAMIDE [Concomitant]
     Active Substance: LOPERAMIDE
     Indication: Diarrhoea
     Dosage: 2 CAPSULES
  7. SPIRONOLACTONE [Concomitant]
     Active Substance: SPIRONOLACTONE
     Indication: Product used for unknown indication
  8. RISEDRONATE 35 mg/d [Concomitant]
     Indication: Product used for unknown indication
  9. Calcium + vit D 3 500mg/d [Concomitant]
     Indication: Product used for unknown indication
  10. NICARDIPINE LOXEN LP 1-0-1 [Concomitant]
     Indication: Product used for unknown indication
  11. INDACATEROL + glycopyrronium 1 inhalation /day [Concomitant]
     Indication: Product used for unknown indication
     Route: 055
  12. LEVOTHYROX LEVOTHYROX 125?g morning [Concomitant]
     Indication: Product used for unknown indication

REACTIONS (1)
  - Cholestatic liver injury [Not Recovered/Not Resolved]

NARRATIVE: CASE EVENT DATE: 20221024
